FAERS Safety Report 25706530 (Version 1)
Quarter: 2025Q3

REPORT INFORMATION
  Report Type: Spontaneous
  Country: US (occurrence: US)
  Receive Date: 20250820
  Receipt Date: 20250820
  Transmission Date: 20251020
  Serious: No
  Sender: CATALYST PHARMA
  Company Number: US-CATALYST PHARMACEUTICALS-US-CATA-25-00837

PATIENT
  Age: 43 Year
  Sex: Male
  Weight: 52.19 kg

DRUGS (21)
  1. AGAMREE [Suspect]
     Active Substance: VAMOROLONE
     Indication: Becker^s muscular dystrophy
     Dosage: 7.5 ML ONCE A DAY
     Route: 048
     Dates: start: 20250607, end: 202506
  2. PREDNISONE [Concomitant]
     Active Substance: PREDNISONE
     Indication: Becker^s muscular dystrophy
     Dosage: 25 MG A DAY
     Route: 065
  3. PREDNISONE [Concomitant]
     Active Substance: PREDNISONE
     Dosage: 25 MG ONCE A DAY
     Route: 065
  4. ASPIRIN [Concomitant]
     Active Substance: ASPIRIN
     Indication: Cardiovascular event prophylaxis
     Dosage: 81 MG A DAY
     Route: 065
  5. CALCIUM [Concomitant]
     Active Substance: CALCIUM
     Indication: Hypovitaminosis
     Dosage: 500 MG DAILY
     Route: 065
  6. OMEGA 3 [Concomitant]
     Active Substance: CAPSAICIN
     Indication: Cardiovascular event prophylaxis
     Dosage: 1000 MG A DAY
     Route: 065
  7. TAMSULOSIN [Concomitant]
     Active Substance: TAMSULOSIN
     Indication: Prostatomegaly
     Dosage: 0.4 MG A DAY
     Route: 065
  8. OXYBUTYNIN [Concomitant]
     Active Substance: OXYBUTYNIN
     Indication: Prostatomegaly
     Dosage: 10 MG A DAY
     Route: 065
  9. LEVOTHYROXINE [Concomitant]
     Active Substance: LEVOTHYROXINE
     Indication: Hypothyroidism
     Dosage: 25 MCG A DAY
     Route: 065
  10. EZETIMIBE [Concomitant]
     Active Substance: EZETIMIBE
     Indication: Blood cholesterol increased
     Dosage: 10 MG ONCE A DAY
     Route: 065
  11. MELOXICAM [Concomitant]
     Active Substance: MELOXICAM
     Indication: Arthritis
     Dosage: 15 MG A DAY
     Route: 065
  12. OMEPRAZOLE [Concomitant]
     Active Substance: OMEPRAZOLE
     Indication: Gastrooesophageal reflux disease
     Dosage: 20 MG A DAY
     Route: 065
  13. EPLERENONE [Concomitant]
     Active Substance: EPLERENONE
     Indication: Cardiovascular event prophylaxis
     Dosage: 25 MG A DAY
     Route: 065
  14. LOSARTAN [Concomitant]
     Active Substance: LOSARTAN
     Indication: Cardiovascular event prophylaxis
     Dosage: 50 MG A DAY
     Route: 065
  15. CARVEDILOL [Concomitant]
     Active Substance: CARVEDILOL
     Indication: Cardiovascular event prophylaxis
     Dosage: 6.25 MG DAILY
     Route: 065
  16. TRIAMCINOLONE [Concomitant]
     Active Substance: TRIAMCINOLONE
     Indication: Rash
     Route: 065
  17. ZOLEDRONIC ACID [Concomitant]
     Active Substance: ZOLEDRONIC ACID
     Indication: Bone disorder
     Route: 065
  18. ZOLEDRONIC ACID [Concomitant]
     Active Substance: ZOLEDRONIC ACID
     Indication: Prophylaxis
  19. SILVER SULFADIAZINE [Concomitant]
     Active Substance: SILVER SULFADIAZINE
     Indication: Rash
     Route: 065
  20. METOPROLOL [Concomitant]
     Active Substance: METOPROLOL
     Indication: Cardiovascular event prophylaxis
     Dosage: 75 MG A DAY
     Route: 065
  21. CALCIUM [Concomitant]
     Active Substance: CALCIUM
     Indication: Hypovitaminosis
     Dosage: 500 MG A DAY
     Route: 065

REACTIONS (7)
  - Rash [Not Recovered/Not Resolved]
  - Decreased appetite [Not Recovered/Not Resolved]
  - Arthralgia [Not Recovered/Not Resolved]
  - Dizziness [Not Recovered/Not Resolved]
  - Anxiety [Not Recovered/Not Resolved]
  - Diarrhoea [Not Recovered/Not Resolved]
  - Off label use [Unknown]

NARRATIVE: CASE EVENT DATE: 20250601
